FAERS Safety Report 6297436-3 (Version None)
Quarter: 2009Q3

REPORT INFORMATION
  Report Type: 
  Country: None (occurrence: None)
  Receive Date: 20090805
  Receipt Date: 20090515
  Transmission Date: 20100115
  Serious: No
  Sender: FDA-Public Use
  Company Number: US-BAYER-200921536NA

PATIENT
  Age: 75 Year
  Sex: Female
  Weight: 44 kg

DRUGS (3)
  1. ULTRAVIST (PHARMACY BULK) [Suspect]
     Indication: ANGIOGRAM
     Dosage: TOTAL DAILY DOSE: 65 ML  UNIT DOSE: 200 ML
     Route: 042
     Dates: start: 20090505, end: 20090505
  2. BENADRYL [Concomitant]
  3. PREDNISONE [Concomitant]
     Dosage: UNIT DOSE: 50 MG

REACTIONS (2)
  - PRURITUS [None]
  - URTICARIA [None]
